FAERS Safety Report 5650559-1 (Version None)
Quarter: 2008Q1

REPORT INFORMATION
  Report Type: 
  Country: None (occurrence: None)
  Receive Date: 20080305
  Receipt Date: 20080225
  Transmission Date: 20080703
  Serious: Yes (Other)
  Sender: FDA-Public Use
  Company Number: US-ROCHE-549785

PATIENT
  Age: 46 Year
  Sex: Female

DRUGS (3)
  1. PEGASYS [Suspect]
     Indication: HEPATITIS C
     Route: 065
     Dates: start: 20080101, end: 20080211
  2. RIBAVIRIN [Suspect]
     Indication: HEPATITIS C
     Route: 048
     Dates: start: 20080101, end: 20080211
  3. AMBIEN [Concomitant]

REACTIONS (5)
  - ABASIA [None]
  - BLOOD BLISTER [None]
  - BONE PAIN [None]
  - HYPOAESTHESIA [None]
  - RASH [None]
